FAERS Safety Report 21669288 (Version 2)
Quarter: 2023Q1

REPORT INFORMATION
  Report Type: Report from Study
  Country: US (occurrence: US)
  Receive Date: 20221201
  Receipt Date: 20230224
  Transmission Date: 20230417
  Serious: Yes (Other)
  Sender: FDA-Public Use
  Company Number: US-ABBVIE-4220252

PATIENT
  Sex: Female
  Weight: 77.11 kg

DRUGS (7)
  1. HUMIRA [Suspect]
     Active Substance: ADALIMUMAB
     Indication: Rheumatoid arthritis
     Dosage: CITRATE FREE, 40 MG
     Route: 058
     Dates: end: 202210
  2. HUMIRA [Suspect]
     Active Substance: ADALIMUMAB
     Dosage: 0.4ML
     Route: 058
     Dates: start: 202207, end: 202208
  3. HUMIRA [Suspect]
     Active Substance: ADALIMUMAB
     Dosage: 0.4ML
     Route: 058
     Dates: start: 20221130
  4. HYDROXYCHLOROQUINE [Concomitant]
     Active Substance: HYDROXYCHLOROQUINE
     Indication: Product used for unknown indication
  5. ESOMEPRAZOLE [Concomitant]
     Active Substance: ESOMEPRAZOLE
     Indication: Product used for unknown indication
  6. FAMOTIDINE [Concomitant]
     Active Substance: FAMOTIDINE
     Indication: Product used for unknown indication
  7. FOSAMAX [Concomitant]
     Active Substance: ALENDRONATE SODIUM
     Indication: Product used for unknown indication

REACTIONS (1)
  - Hip surgery [Recovered/Resolved]
